FAERS Safety Report 13267456 (Version 1)
Quarter: 2017Q1

REPORT INFORMATION
  Report Type: Spontaneous
  Country: US (occurrence: US)
  Receive Date: 20170224
  Receipt Date: 20170224
  Transmission Date: 20170428
  Serious: No
  Sender: FDA-Public Use
  Company Number: US-ELI_LILLY_AND_COMPANY-US201702004262

PATIENT
  Age: 62 Year
  Sex: Male

DRUGS (3)
  1. CIALIS [Suspect]
     Active Substance: TADALAFIL
     Dosage: 20 MG, PRN
     Route: 065
     Dates: start: 201702
  2. CIALIS [Suspect]
     Active Substance: TADALAFIL
     Indication: ERECTILE DYSFUNCTION
     Dosage: 5 MG (ONE HALF IN THE MORNING AND ONE HALF IN THE EVENING), QD
     Route: 065
     Dates: start: 201608, end: 201612
  3. CIALIS [Suspect]
     Active Substance: TADALAFIL
     Indication: BENIGN PROSTATIC HYPERPLASIA
     Dosage: 5 MG (ONE HALF IN THE MORNING AND ONE HALF IN THE EVENING), QD
     Route: 065
     Dates: start: 201702

REACTIONS (6)
  - Headache [Recovered/Resolved]
  - Eye disorder [Recovered/Resolved]
  - Back pain [Recovered/Resolved]
  - Flushing [Unknown]
  - Wrong technique in product usage process [Unknown]
  - Drug ineffective [Unknown]

NARRATIVE: CASE EVENT DATE: 201608
